FAERS Safety Report 7385325-2 (Version None)
Quarter: 2011Q1

REPORT INFORMATION
  Report Type: 
  Country: None (occurrence: None)
  Receive Date: 20110330
  Receipt Date: 20100729
  Transmission Date: 20110831
  Serious: No
  Sender: FDA-Public Use
  Company Number: US-MYLANLABS-2010S1014023

PATIENT
  Age: 20 Year
  Sex: Male

DRUGS (2)
  1. PERPHENAZINE [Concomitant]
  2. EMSAM [Suspect]
     Indication: OBSESSIVE-COMPULSIVE DISORDER
     Dosage: Q24H
     Route: 062
     Dates: start: 20100719, end: 20100721

REACTIONS (2)
  - INSOMNIA [None]
  - DIZZINESS [None]
